FAERS Safety Report 9137348 (Version 1)
Quarter: 2013Q1

REPORT INFORMATION
  Report Type: Spontaneous
  Country: CA (occurrence: CA)
  Receive Date: 20130304
  Receipt Date: 20130304
  Transmission Date: 20140127
  Serious: Yes (Other)
  Sender: FDA-Public Use
  Company Number: CA-ASTRAZENECA-2013SE12451

PATIENT
  Age: 72 Year
  Sex: Male

DRUGS (10)
  1. BRILINTA [Suspect]
     Route: 048
  2. CRESTOR [Concomitant]
     Route: 048
  3. HUMALOG [Concomitant]
  4. HYDROCHLOROTHIAZIDE [Concomitant]
  5. LISINOPRIL [Concomitant]
  6. LOSEC [Concomitant]
  7. METFORMIN [Concomitant]
  8. NITROGLYCERIN [Concomitant]
  9. NORVASC [Concomitant]
  10. SOTALOL [Concomitant]

REACTIONS (6)
  - Back pain [Not Recovered/Not Resolved]
  - Cough [Not Recovered/Not Resolved]
  - Drug hypersensitivity [Not Recovered/Not Resolved]
  - Epistaxis [Not Recovered/Not Resolved]
  - Pruritus [Not Recovered/Not Resolved]
  - Urticaria [Not Recovered/Not Resolved]
